FAERS Safety Report 10191308 (Version 1)
Quarter: 2014Q2

REPORT INFORMATION
  Report Type: Report from Study
  Country: JP (occurrence: JP)
  Receive Date: 20140523
  Receipt Date: 20140523
  Transmission Date: 20141212
  Serious: Yes (Hospitalization)
  Sender: FDA-Public Use
  Company Number: JP-SA-2014SA065110

PATIENT
  Age: 23 Year
  Sex: Male
  Weight: 65 kg

DRUGS (8)
  1. THYMOGLOBULINE [Suspect]
     Indication: APLASTIC ANAEMIA
     Route: 042
     Dates: start: 20130701, end: 20130705
  2. ITRIZOLE [Concomitant]
     Indication: PROPHYLAXIS
     Dates: start: 20130701, end: 20130826
  3. BAKTAR [Concomitant]
     Indication: PROPHYLAXIS
     Dates: start: 20130701
  4. VICCLOX [Concomitant]
     Indication: PROPHYLAXIS
     Dates: start: 20130701
  5. DIPHENHYDRAMINE [Concomitant]
     Indication: PROPHYLAXIS
     Dates: start: 20130701
  6. PREDONINE [Concomitant]
     Indication: PROPHYLAXIS
     Dates: start: 20130706, end: 20130812
  7. PREDONINE [Concomitant]
     Indication: APLASTIC ANAEMIA
     Dates: start: 20130706, end: 20130812
  8. NEORAL [Concomitant]
     Indication: APLASTIC ANAEMIA

REACTIONS (1)
  - Febrile neutropenia [Recovering/Resolving]
